FAERS Safety Report 5625123-0 (Version None)
Quarter: 2008Q1

REPORT INFORMATION
  Report Type: 
  Country: None (occurrence: None)
  Receive Date: 20080213
  Receipt Date: 20080201
  Transmission Date: 20080703
  Serious: No
  Sender: FDA-Public Use
  Company Number: US-BOEHRINGER INGELHEIM GMBH, GERMANY-2008-BP-01632BP

PATIENT
  Age: 78 Year
  Sex: Male

DRUGS (4)
  1. FLOMAX [Suspect]
     Indication: PROSTATE CANCER
     Route: 048
     Dates: start: 20080131
  2. FLOMAX [Suspect]
     Indication: MICTURITION DISORDER
  3. PREDNISONE TAB [Concomitant]
     Indication: ARTHRITIS
  4. SYNTHROID [Concomitant]
     Indication: HYPOTHYROIDISM

REACTIONS (8)
  - ABDOMINAL DISTENSION [None]
  - ABDOMINAL PAIN UPPER [None]
  - ASTHENIA [None]
  - BRONCHIECTASIS [None]
  - DRY MOUTH [None]
  - PARAESTHESIA [None]
  - VISION BLURRED [None]
  - WHEEZING [None]
